FAERS Safety Report 5201538-X (Version None)
Quarter: 2007Q1

REPORT INFORMATION
  Report Type: 
  Country: None (occurrence: None)
  Receive Date: 20070104
  Receipt Date: 20061227
  Transmission Date: 20070707
  Serious: Yes (Life-Threatening, Hospitalization)
  Sender: FDA-Public Use
  Company Number: 163-21880-06100724

PATIENT
  Age: 76 Year
  Sex: Female

DRUGS (3)
  1. REVLIMID [Suspect]
     Indication: MULTIPLE MYELOMA
     Dosage: 25 MG, DAILY, ORAL
     Route: 048
     Dates: start: 20060905, end: 20060912
  2. HYDROMORPHONE HCL [Concomitant]
  3. TOPROL-XL [Concomitant]

REACTIONS (3)
  - DIALYSIS [None]
  - RENAL DISORDER [None]
  - RENAL FAILURE ACUTE [None]
